FAERS Safety Report 24076642 (Version 2)
Quarter: 2025Q3

REPORT INFORMATION
  Report Type: Spontaneous
  Country: GB (occurrence: GB)
  Receive Date: 20240711
  Receipt Date: 20250708
  Transmission Date: 20251021
  Serious: Yes (Other)
  Sender: GLAXOSMITHKLINE
  Company Number: None

PATIENT
  Age: 46 Year
  Sex: Male
  Weight: 64 kg

DRUGS (2)
  1. FLUTICASONE FUROATE [Suspect]
     Active Substance: FLUTICASONE FUROATE
     Indication: Chronic rhinosinusitis without nasal polyps
     Dosage: 27.5 UG, QD (1 OR 2 PUFFS IN EACH NOSTRIL DAILY, 27.5UG/SPRAY)
  2. FINASTERIDE [Concomitant]
     Active Substance: FINASTERIDE
     Indication: Alopecia
     Route: 065

REACTIONS (4)
  - Anosmia [Recovering/Resolving]
  - Therapy cessation [Unknown]
  - Epistaxis [Unknown]
  - Nasal dryness [Unknown]

NARRATIVE: CASE EVENT DATE: 20170101
